FAERS Safety Report 25419871 (Version 1)
Quarter: 2025Q2

REPORT INFORMATION
  Report Type: Spontaneous
  Country: US (occurrence: US)
  Receive Date: 20250610
  Receipt Date: 20250610
  Transmission Date: 20250717
  Serious: No
  Sender: SANOFI AVENTIS
  Company Number: US-SA-2025SA163829

PATIENT
  Age: 52 Year
  Sex: Female
  Weight: 79.05 kg

DRUGS (6)
  1. DUPIXENT [Suspect]
     Active Substance: DUPILUMAB
     Indication: Dermatitis atopic
     Dosage: 300 MG, QOW
     Route: 058
  2. IVERMECTIN [Concomitant]
     Active Substance: IVERMECTIN
  3. PROTOPIC [Concomitant]
     Active Substance: TACROLIMUS
  4. SPIRONOLACTONE [Concomitant]
     Active Substance: SPIRONOLACTONE
  5. BETAMETHASONE [Concomitant]
     Active Substance: BETAMETHASONE
  6. MELOXICAM [Concomitant]
     Active Substance: MELOXICAM

REACTIONS (2)
  - Dermatitis atopic [Not Recovered/Not Resolved]
  - Therapeutic response shortened [Not Recovered/Not Resolved]
